FAERS Safety Report 19615939 (Version 1)
Quarter: 2021Q3

REPORT INFORMATION
  Report Type: Report from Study
  Country: FR (occurrence: FR)
  Receive Date: 20210727
  Receipt Date: 20210727
  Transmission Date: 20211014
  Serious: Yes (Hospitalization)
  Sender: FDA-Public Use
  Company Number: FR-SA-2018SA120507

PATIENT
  Age: 71 Year
  Sex: Female
  Weight: 49 kg

DRUGS (18)
  1. NASONEX [Concomitant]
     Active Substance: MOMETASONE FUROATE
     Dosage: UNK
     Route: 045
     Dates: start: 20180423, end: 20180511
  2. VALACYCLOVIR [Concomitant]
     Active Substance: VALACYCLOVIR HYDROCHLORIDE
     Indication: PROPHYLAXIS
     Dosage: 1000 MG, QD
     Route: 048
     Dates: start: 20180416
  3. ISATUXIMAB [Suspect]
     Active Substance: ISATUXIMAB
     Indication: PLASMA CELL MYELOMA
     Dosage: 10 MG/KG, QW
     Route: 042
     Dates: start: 20180423, end: 20180423
  4. ASPEGIC [ACETYLSALICYLATE LYSINE] [Concomitant]
     Active Substance: ASPIRIN DL-LYSINE
     Indication: PROPHYLAXIS
     Dosage: 100 MG
     Route: 048
     Dates: start: 2014
  5. AERIUS (DESLORATADINE) [Concomitant]
     Active Substance: DESLORATADINE
     Dosage: UNK
     Route: 048
     Dates: start: 20180423, end: 20180511
  6. XATRAL [ALFUZOSIN] [Concomitant]
     Dosage: 10 MG, QD
     Route: 048
     Dates: start: 20171001
  7. DEXERYL [GLYCEROL;PARAFFIN, LIQUID;WHITE SOFT PARAFFIN] [Concomitant]
     Active Substance: GLYCERIN\MINERAL OIL\PETROLATUM
     Dosage: UNK
     Route: 003
     Dates: start: 20180330, end: 20180412
  8. DEXAMETHASONE. [Suspect]
     Active Substance: DEXAMETHASONE
     Dosage: 20 MG, D1, D4, D8, D11, D15, D22, D25, D29, D32
     Route: 048
     Dates: start: 20180227, end: 20180227
  9. BORTEZOMIB. [Suspect]
     Active Substance: BORTEZOMIB
     Indication: PLASMA CELL MYELOMA
     Dosage: 1.3 MG/M2, OTHER ON D1, D4, D8, D11, D22, D25, D29 AND D32 FOR EACH 6?WEEK CYCLE
     Route: 058
     Dates: start: 20180419, end: 20180419
  10. NOCTAMIDE [Concomitant]
     Active Substance: LORMETAZEPAM
     Dosage: 1 DF, QD
     Route: 048
     Dates: start: 2011, end: 20180522
  11. MACROGOL [Concomitant]
     Active Substance: POLYETHYLENE GLYCOLS
     Dosage: 2 DF, QD
     Route: 048
     Dates: start: 20180312
  12. BORTEZOMIB. [Suspect]
     Active Substance: BORTEZOMIB
     Dosage: 1.3 MG/M2, OTHER ON D1, D4, D8, D11, D22, D25, D29 AND D32 FOR EACH 6?WEEK CYCLE
     Route: 058
     Dates: start: 20180227, end: 20180227
  13. MICROLAX [SODIUM CITRATE;SODIUM LAURYL SULFOACETATE] [Concomitant]
     Dosage: 1 DF, QD
     Route: 048
     Dates: start: 20180312
  14. ISATUXIMAB [Suspect]
     Active Substance: ISATUXIMAB
     Dosage: 10 MG/KG, QW
     Route: 042
     Dates: start: 20180227, end: 20180227
  15. LENALIDOMIDE [Suspect]
     Active Substance: LENALIDOMIDE
     Indication: PLASMA CELL MYELOMA
     Dosage: 300 MG/M2,UNK
     Route: 048
     Dates: start: 20180422, end: 20180422
  16. LENALIDOMIDE [Suspect]
     Active Substance: LENALIDOMIDE
     Dosage: 300 MG/M2,UNK
     Route: 048
     Dates: start: 20180227, end: 20180227
  17. DIPROSONE [Concomitant]
     Active Substance: BETAMETHASONE DIPROPIONATE
     Dosage: UNK
     Route: 003
     Dates: start: 201804, end: 20180430
  18. DEXAMETHASONE. [Suspect]
     Active Substance: DEXAMETHASONE
     Indication: PLASMA CELL MYELOMA
     Dosage: 20 MG, QW
     Route: 048
     Dates: start: 20180423, end: 20180423

REACTIONS (1)
  - Parainfluenzae viral bronchitis [Recovered/Resolved]

NARRATIVE: CASE EVENT DATE: 20180424
